FAERS Safety Report 5233312-2 (Version None)
Quarter: 2007Q1

REPORT INFORMATION
  Report Type: 
  Country: None (occurrence: None)
  Receive Date: 20070206
  Receipt Date: 20070122
  Transmission Date: 20070707
  Serious: Yes (Other)
  Sender: FDA-Public Use
  Company Number: ALA_0011_2006

PATIENT
  Sex: Male

DRUGS (5)
  1. ROWASA [Suspect]
     Dosage: DF QDAY TPL
     Route: 061
     Dates: start: 19980301, end: 19981201
  2. ROWASA [Suspect]
     Dosage: DF QDAY
     Dates: start: 19981201, end: 19990101
  3. PREDNISONE 50MG TAB [Concomitant]
  4. PENICILLIN [Concomitant]
  5. CALCIUM CARBONATE [Concomitant]

REACTIONS (17)
  - ABDOMINAL PAIN [None]
  - CRYING [None]
  - DIARRHOEA [None]
  - DRUG EXPOSURE DURING PREGNANCY [None]
  - DRUG EXPOSURE VIA BREAST MILK [None]
  - EYE OEDEMA [None]
  - GLOMERULONEPHRITIS MINIMAL LESION [None]
  - INSOMNIA [None]
  - MULTIPLE ALLERGIES [None]
  - NAUSEA [None]
  - NEONATAL DISORDER [None]
  - NEPHROTIC SYNDROME [None]
  - SINUSITIS [None]
  - TESTICULAR SWELLING [None]
  - UNDERWEIGHT [None]
  - URTICARIA [None]
  - VOMITING [None]
